FAERS Safety Report 11253527 (Version 2)
Quarter: 2018Q1

REPORT INFORMATION
  Report Type: Report from Study
  Country: GB (occurrence: GB)
  Receive Date: 20150709
  Receipt Date: 20180307
  Transmission Date: 20180508
  Serious: Yes (Death)
  Sender: FDA-Public Use
  Company Number: GB-AMGEN-GBRNI2015067620

PATIENT
  Age: 66 Year
  Sex: Male
  Weight: 86 kg

DRUGS (1)
  1. ETANERCEPT [Suspect]
     Active Substance: ETANERCEPT
     Indication: RHEUMATOID ARTHRITIS
     Dosage: 25 MG, 2X/WEEK
     Route: 058
     Dates: start: 20040331, end: 20050928

REACTIONS (5)
  - Osteoarthritis [Fatal]
  - Emphysema [Fatal]
  - Oesophageal carcinoma [Fatal]
  - Hypertensive heart disease [Fatal]
  - Pneumonia [Fatal]

NARRATIVE: CASE EVENT DATE: 2006
